APPROVED DRUG PRODUCT: ROBIMYCIN
Active Ingredient: ERYTHROMYCIN
Strength: 250MG
Dosage Form/Route: TABLET, DELAYED RELEASE;ORAL
Application: A061633 | Product #001
Applicant: AH ROBINS CO
Approved: Approved Prior to Jan 1, 1982 | RLD: No | RS: No | Type: DISCN